FAERS Safety Report 9693013 (Version 1)
Quarter: 2013Q4

REPORT INFORMATION
  Report Type: Spontaneous
  Country: JP (occurrence: JP)
  Receive Date: 20131118
  Receipt Date: 20131118
  Transmission Date: 20140711
  Serious: Yes (Other)
  Sender: FDA-Public Use
  Company Number: JP-PFIZER INC-2013327071

PATIENT
  Age: 8 Year
  Sex: Female

DRUGS (6)
  1. METHOTREXATE SODIUM [Suspect]
     Indication: ACUTE MYELOID LEUKAEMIA
     Route: 037
  2. HYDROCORTISONE SODIUM SUCCINATE [Suspect]
     Indication: ACUTE MYELOID LEUKAEMIA
     Route: 037
  3. MITOXANTRONE HCL [Suspect]
     Indication: ACUTE MYELOID LEUKAEMIA
  4. IDARUBICIN HCL [Suspect]
     Indication: ACUTE MYELOID LEUKAEMIA
  5. ETOPOSIDE [Suspect]
     Indication: ACUTE MYELOID LEUKAEMIA
  6. CITARABINA [Suspect]
     Indication: ACUTE MYELOID LEUKAEMIA

REACTIONS (5)
  - Aplastic anaemia [Unknown]
  - Osteonecrosis [Unknown]
  - Hypothyroidism [Unknown]
  - Primary hypogonadism [Unknown]
  - Haemangioma [Unknown]
